FAERS Safety Report 13739193 (Version 1)
Quarter: 2017Q3

REPORT INFORMATION
  Report Type: Spontaneous
  Country: US (occurrence: US)
  Receive Date: 20170710
  Receipt Date: 20170710
  Transmission Date: 20171127
  Serious: Yes (Hospitalization, Other)
  Sender: FDA-Public Use
  Company Number: US-SAOL THERAPEUTICS-2017SAO01002

PATIENT
  Age: 32 Year
  Sex: Male
  Weight: 74.1 kg

DRUGS (5)
  1. MULTIVITAMIN [Concomitant]
     Active Substance: VITAMINS
  2. ALBUTEROL INHALER [Concomitant]
     Active Substance: ALBUTEROL
  3. BISACODYL. [Concomitant]
     Active Substance: BISACODYL
  4. BACLOFEN. [Suspect]
     Active Substance: BACLOFEN
     Indication: MUSCLE SPASTICITY
     Dosage: 710 ?G, \DAY
     Route: 037
     Dates: start: 2003
  5. CIALIS [Concomitant]
     Active Substance: TADALAFIL

REACTIONS (2)
  - Implant site extravasation [Not Recovered/Not Resolved]
  - Drug withdrawal syndrome [Unknown]

NARRATIVE: CASE EVENT DATE: 20170605
